FAERS Safety Report 16777110 (Version 3)
Quarter: 2019Q3

REPORT INFORMATION
  Report Type: Report from Study
  Country: US (occurrence: US)
  Receive Date: 20190905
  Receipt Date: 20190906
  Transmission Date: 20191005
  Serious: No
  Sender: FDA-Public Use
  Company Number: US-EMD SERONO-9096622

PATIENT
  Age: 56 Year
  Sex: Male

DRUGS (2)
  1. MAVENCLAD [Suspect]
     Active Substance: CLADRIBINE
     Indication: MULTIPLE SCLEROSIS
     Dosage: FIRST YEAR FIRST WEEK THERAPY: TOOK TWO TABLETS (EACH TABLET 10 MG) ON DAYS 1 TO 3 AND ONE TABLET ON
     Route: 048
     Dates: start: 20190603, end: 20190607
  2. MAVENCLAD [Suspect]
     Active Substance: CLADRIBINE
     Dosage: FIRST YEAR SECOND WEEK THERAPY: THE PATIENT TOOK TWO TABLETS (EACH TABLET 10 MG) ON DAYS 1 AND 2 AND
     Route: 048
     Dates: start: 20190703, end: 20190708

REACTIONS (7)
  - Sinus disorder [Unknown]
  - Musculoskeletal stiffness [Unknown]
  - Ocular hyperaemia [Unknown]
  - Arthritis [Unknown]
  - Arthralgia [Unknown]
  - Headache [Not Recovered/Not Resolved]
  - Foreign body sensation in eyes [Unknown]

NARRATIVE: CASE EVENT DATE: 201906
